FAERS Safety Report 5608693-8 (Version None)
Quarter: 2008Q1

REPORT INFORMATION
  Report Type: 
  Country: None (occurrence: None)
  Receive Date: 20080131
  Receipt Date: 20080121
  Transmission Date: 20080703
  Serious: Yes (Hospitalization)
  Sender: FDA-Public Use
  Company Number: GB-PFIZER INC-2007102925

PATIENT
  Sex: Female
  Weight: 86 kg

DRUGS (2)
  1. CHANTIX [Suspect]
     Indication: SMOKING CESSATION THERAPY
     Route: 048
  2. RAMIPRIL [Concomitant]
     Indication: HYPERTENSION
     Dosage: DAILY DOSE:5MG
     Route: 048

REACTIONS (14)
  - ABDOMINAL TENDERNESS [None]
  - ANAEMIA [None]
  - CELLULITIS [None]
  - DYSPNOEA [None]
  - HYPERTENSION [None]
  - JOINT SWELLING [None]
  - MALAISE [None]
  - MYALGIA [None]
  - OEDEMA PERIPHERAL [None]
  - RASH PRURITIC [None]
  - TACHYCARDIA [None]
  - TEARFULNESS [None]
  - THYROID FUNCTION TEST ABNORMAL [None]
  - TREMOR [None]
